FAERS Safety Report 6977463-0 (Version None)
Quarter: 2010Q3

REPORT INFORMATION
  Report Type: 
  Country: None (occurrence: None)
  Receive Date: 20100910
  Receipt Date: 20100901
  Transmission Date: 20110219
  Serious: Yes (Other)
  Sender: FDA-Public Use
  Company Number: AU-NAPPMUNDI-USA-2009-0040273

PATIENT
  Sex: Male

DRUGS (7)
  1. BLINDED BTDS 10 MG [Suspect]
     Indication: PAIN
     Dosage: UNK
     Route: 062
     Dates: start: 20090415, end: 20090922
  2. BLINDED BTDS 20 MG [Suspect]
     Indication: PAIN
     Dosage: UNK
     Route: 062
     Dates: start: 20090415, end: 20090922
  3. BLINDED BTDS 30 MG [Suspect]
     Indication: PAIN
     Dosage: UNK
     Route: 062
     Dates: start: 20090415, end: 20090922
  4. BLINDED BTDS 40 MG [Suspect]
     Indication: PAIN
     Dosage: UNK
     Route: 062
     Dates: start: 20090415, end: 20090922
  5. BLINDED BTDS PATCH [Suspect]
     Indication: PAIN
     Dosage: UNK
     Route: 062
     Dates: start: 20090415, end: 20090922
  6. BLINDED NONE [Suspect]
     Indication: PAIN
     Dosage: UNK
     Route: 062
     Dates: start: 20090415, end: 20090922
  7. BLINDED PLACEBO TRANSDERMAL PATCH [Suspect]
     Indication: PAIN
     Dosage: UNK
     Route: 062
     Dates: start: 20090415, end: 20090922

REACTIONS (2)
  - LYMPHOMA [None]
  - PNEUMONIA [None]
